FAERS Safety Report 14242992 (Version 8)
Quarter: 2020Q1

REPORT INFORMATION
  Report Type: Spontaneous
  Country: GB (occurrence: GB)
  Receive Date: 20171201
  Receipt Date: 20200204
  Transmission Date: 20200409
  Serious: Yes (Other)
  Sender: FDA-Public Use
  Company Number: GB-JNJFOC-20171132312

PATIENT
  Age: 63 Year
  Sex: Female
  Weight: 76 kg

DRUGS (22)
  1. MIDAZOLAM HYDROCHLORIDE. [Interacting]
     Active Substance: MIDAZOLAM HYDROCHLORIDE
     Indication: SEIZURE
     Route: 042
     Dates: start: 20171031, end: 20171031
  2. TRANEXAMIC ACID. [Concomitant]
     Active Substance: TRANEXAMIC ACID
     Indication: HAEMORRHAGE PROPHYLAXIS
     Route: 042
     Dates: start: 20171031, end: 20171031
  3. BUCCASTEM [Concomitant]
     Active Substance: PROCHLORPERAZINE MALEATE
     Indication: PREMEDICATION
     Route: 002
     Dates: start: 20171031, end: 20171031
  4. FENTANYL CITRATE. [Suspect]
     Active Substance: FENTANYL CITRATE
     Indication: SPINAL ANAESTHESIA
     Route: 037
     Dates: start: 20171031, end: 20171031
  5. ACETAMINOPHEN AND CODEINE [Interacting]
     Active Substance: ACETAMINOPHEN\CODEINE PHOSPHATE
     Indication: PRODUCT USED FOR UNKNOWN INDICATION
     Dosage: 8 DF, 2 DF, QID, 30/500MG 2 TABLETS 4 TIMES DAILY
     Route: 065
  6. MIDAZOLAM HYDROCHLORIDE. [Interacting]
     Active Substance: MIDAZOLAM HYDROCHLORIDE
     Indication: SEDATION
     Route: 042
     Dates: start: 20171031, end: 20171031
  7. MARCAIN HEAVY [Suspect]
     Active Substance: BUPIVACAINE HYDROCHLORIDE
     Indication: SPINAL ANAESTHESIA
     Route: 037
     Dates: start: 20171031, end: 20171031
  8. ZOMORPH [Suspect]
     Active Substance: MORPHINE SULFATE
     Route: 048
     Dates: start: 20171031, end: 20171031
  9. ADRENALINE                         /00003901/ [Concomitant]
     Active Substance: EPINEPHRINE
     Indication: LOCAL ANAESTHESIA
     Route: 058
     Dates: start: 20171031, end: 20171031
  10. BUPIVACAINE W/EPINEPHRINE [Concomitant]
     Active Substance: BUPIVACAINE\EPINEPHRINE
     Indication: LOCAL ANAESTHESIA
     Route: 058
     Dates: start: 20171031, end: 20171031
  11. ZOMORPH [Suspect]
     Active Substance: MORPHINE SULFATE
     Indication: PREMEDICATION
     Route: 048
  12. GABAPENTIN. [Concomitant]
     Active Substance: GABAPENTIN
     Indication: PREMEDICATION
     Route: 048
     Dates: start: 20171031, end: 20171031
  13. GENTAMICIN. [Concomitant]
     Active Substance: GENTAMICIN
     Indication: INFECTION PROPHYLAXIS
     Route: 042
     Dates: start: 20171031, end: 20171031
  14. TEICOPLANIN [Concomitant]
     Active Substance: TEICOPLANIN
     Indication: INFECTION PROPHYLAXIS
     Route: 042
     Dates: start: 20171031, end: 20171031
  15. LONGTEC [Interacting]
     Active Substance: OXYCODONE HYDROCHLORIDE
     Indication: PREMEDICATION
     Route: 048
     Dates: start: 20171031, end: 20171031
  16. PARACETAMOL [Concomitant]
     Active Substance: ACETAMINOPHEN
     Indication: PAIN
     Route: 048
  17. LONGTEC [Interacting]
     Active Substance: OXYCODONE HYDROCHLORIDE
     Indication: PAIN
     Route: 048
  18. FENTANYL. [Suspect]
     Active Substance: FENTANYL
     Indication: SPINAL ANAESTHESIA
     Route: 062
     Dates: start: 20171031, end: 20171031
  19. MIDAZOLAM HYDROCHLORIDE. [Interacting]
     Active Substance: MIDAZOLAM HYDROCHLORIDE
     Route: 042
     Dates: start: 20171031, end: 20171031
  20. PARACETAMOL [Concomitant]
     Active Substance: ACETAMINOPHEN
     Indication: PREMEDICATION
     Route: 048
     Dates: start: 20171031, end: 20171031
  21. CEFUROXIME. [Concomitant]
     Active Substance: CEFUROXIME
     Indication: INFECTION PROPHYLAXIS
     Route: 042
     Dates: start: 20171031, end: 20171031
  22. BISOXATINE [Concomitant]
     Indication: PRODUCT USED FOR UNKNOWN INDICATION
     Route: 002

REACTIONS (6)
  - Drug interaction [Recovered/Resolved]
  - Therapeutic product effect variable [Recovered/Resolved]
  - Off label use [Unknown]
  - Product use in unapproved indication [Unknown]
  - Hyperaesthesia [Recovered/Resolved]
  - Incorrect route of product administration [Unknown]

NARRATIVE: CASE EVENT DATE: 20171031
